FAERS Safety Report 26028743 (Version 1)
Quarter: 2025Q4

REPORT INFORMATION
  Report Type: Spontaneous
  Country: US (occurrence: US)
  Receive Date: 20251111
  Receipt Date: 20251111
  Transmission Date: 20260118
  Serious: No
  Sender: SANOFI AVENTIS
  Company Number: US-SANOFI-02713431

PATIENT
  Sex: Female

DRUGS (1)
  1. DUPIXENT [Suspect]
     Active Substance: DUPILUMAB
     Indication: Asthma
     Dosage: 300 MG, QOW
     Dates: start: 2023

REACTIONS (5)
  - Phlebitis [Unknown]
  - Hordeolum [Unknown]
  - Eyelids pruritus [Unknown]
  - Conjunctivitis [Unknown]
  - Dry eye [Unknown]
